FAERS Safety Report 4407250-9 (Version None)
Quarter: 2004Q3

REPORT INFORMATION
  Report Type: 
  Country: None (occurrence: None)
  Receive Date: 20040723
  Receipt Date: 20040723
  Transmission Date: 20050211
  Serious: Yes (Life-Threatening)
  Sender: FDA-Public Use
  Company Number: None

PATIENT
  Age: 32 Year
  Sex: Female
  Weight: 131.5431 kg

DRUGS (2)
  1. PAXIL CR [Suspect]
     Indication: PANIC ATTACK
     Dosage: 1 PILL ONCE DAILY ORAL
     Route: 048
     Dates: start: 20031128, end: 20040711
  2. LEXAPRO [Suspect]
     Dosage: 1 PILL TWICE DAILY ORAL
     Route: 048

REACTIONS (18)
  - ANXIETY [None]
  - AUTOIMMUNE THYROIDITIS [None]
  - CHEST DISCOMFORT [None]
  - CRYING [None]
  - DEPRESSION [None]
  - DRUG WITHDRAWAL SYNDROME [None]
  - FEAR [None]
  - FEELING ABNORMAL [None]
  - GASTROOESOPHAGEAL REFLUX DISEASE [None]
  - INFLUENZA LIKE ILLNESS [None]
  - MENTAL DISORDER [None]
  - MIGRAINE [None]
  - MUSCLE CRAMP [None]
  - NIGHTMARE [None]
  - PAIN [None]
  - PANIC ATTACK [None]
  - SUICIDAL IDEATION [None]
  - WEIGHT INCREASED [None]
